FAERS Safety Report 6934301-X (Version None)
Quarter: 2010Q3

REPORT INFORMATION
  Report Type: 
  Country: None (occurrence: None)
  Receive Date: 20100820
  Receipt Date: 20100809
  Transmission Date: 20110219
  Serious: Yes (Hospitalization)
  Sender: FDA-Public Use
  Company Number: A0833410A

PATIENT
  Sex: Male
  Weight: 122.3 kg

DRUGS (6)
  1. AVANDIA [Suspect]
     Dosage: 4MG PER DAY
     Route: 048
     Dates: start: 19990101, end: 20070521
  2. METFORMIN [Concomitant]
  3. COLESTID [Concomitant]
  4. ALLOPURINOL [Concomitant]
  5. BYETTA [Concomitant]
  6. MEVACOR [Concomitant]

REACTIONS (5)
  - CARDIAC DISORDER [None]
  - CARDIAC FAILURE [None]
  - CARDIAC FAILURE CONGESTIVE [None]
  - CARDIOMYOPATHY [None]
  - THROMBOSIS [None]
